FAERS Safety Report 23648544 (Version 1)
Quarter: 2024Q1

REPORT INFORMATION
  Report Type: Spontaneous
  Country: CN (occurrence: CN)
  Receive Date: 20240319
  Receipt Date: 20240319
  Transmission Date: 20240410
  Serious: Yes (Hospitalization, Other)
  Sender: FDA-Public Use
  Company Number: CN-PFIZER INC-PV202400036146

PATIENT
  Age: 60 Year
  Sex: Male
  Weight: 66 kg

DRUGS (3)
  1. IRINOTECAN HYDROCHLORIDE [Suspect]
     Active Substance: IRINOTECAN HYDROCHLORIDE
     Indication: Gastric cancer
     Dosage: 270 MG, 1X/DAY
     Route: 041
     Dates: start: 20240205, end: 20240205
  2. LEUCOVORIN CALCIUM [Suspect]
     Active Substance: LEUCOVORIN CALCIUM
     Indication: Gastric cancer
     Dosage: 0.3G + SODIUM CHLORIDE INJECTION 0.9% 20ML MICROPUMP ONCE
     Dates: start: 20240205, end: 20240205
  3. SODIUM CHLORIDE [Concomitant]
     Active Substance: SODIUM CHLORIDE
     Indication: Gastric cancer
     Dosage: 250 ML, 1X/DAY
     Route: 041
     Dates: start: 20240205, end: 20240205

REACTIONS (3)
  - Epilepsy [Unknown]
  - Neutrophil count decreased [Recovered/Resolved]
  - White blood cell count decreased [Recovered/Resolved]

NARRATIVE: CASE EVENT DATE: 20240201
